FAERS Safety Report 19836290 (Version 1)
Quarter: 2021Q3

REPORT INFORMATION
  Report Type: Spontaneous
  Country: US (occurrence: US)
  Receive Date: 20210916
  Receipt Date: 20210916
  Transmission Date: 20211014
  Serious: Yes (Other)
  Sender: FDA-Public Use
  Company Number: US-AUROBINDO-AUR-APL-2021-038680

PATIENT
  Age: 14 Year
  Sex: Male

DRUGS (4)
  1. METHYLPREDNISOLONE. [Suspect]
     Active Substance: METHYLPREDNISOLONE
     Indication: ACUTE DISSEMINATED ENCEPHALOMYELITIS
     Dosage: 1 GRAM, DAILY
     Route: 042
  2. MANNITOL. [Suspect]
     Active Substance: MANNITOL
     Indication: ACUTE DISSEMINATED ENCEPHALOMYELITIS
     Dosage: UNK
     Route: 042
  3. SODIUM CHLORIDE. [Suspect]
     Active Substance: SODIUM CHLORIDE
     Indication: ACUTE DISSEMINATED ENCEPHALOMYELITIS
     Dosage: UNK
     Route: 065
  4. IMMUNOGLOBULIN [IMMUNOGLOBULINS NOS] [Suspect]
     Active Substance: IMMUNE GLOBULIN NOS
     Indication: ACUTE DISSEMINATED ENCEPHALOMYELITIS
     Dosage: UNK
     Route: 042

REACTIONS (1)
  - Drug ineffective [Unknown]
